FAERS Safety Report 4859953-X (Version None)
Quarter: 2005Q4

REPORT INFORMATION
  Report Type: 
  Country: None (occurrence: None)
  Receive Date: 20051215
  Receipt Date: 20051202
  Transmission Date: 20060501
  Serious: Yes (Other)
  Sender: FDA-Public Use
  Company Number: 2005163097

PATIENT
  Age: 70 Year
  Sex: Male
  Weight: 60 kg

DRUGS (11)
  1. ATARAX [Suspect]
     Indication: RASH
     Dosage: 25 MG, ORAL
     Route: 048
     Dates: start: 20051121, end: 20051121
  2. ZYRTEC [Suspect]
     Indication: URTICARIA
     Dosage: 10 MG (10 MG, 1 IN 1 D), ORAL
     Route: 048
     Dates: start: 20051121, end: 20051121
  3. URSODIOL [Concomitant]
  4. KRESTIN (POLYSACCHARIDE-K) [Concomitant]
  5. BERIZYM (ENZYMES NOS) [Concomitant]
  6. GASCON (DIMETICONE) [Concomitant]
  7. ALINAMIN (PROSULTIAMINE) [Concomitant]
  8. ZYRTEC [Concomitant]
  9. CEPHADOL (DIFENIDOL HYDROCHLORIDE) [Concomitant]
  10. ISOBIDE (ISOSORBIDE) [Concomitant]
  11. MERISLON (BETAHISTINE HYDROCHLORIDE) [Concomitant]

REACTIONS (8)
  - CONDITION AGGRAVATED [None]
  - DIZZINESS [None]
  - DYSPNOEA [None]
  - ECZEMA [None]
  - FALL [None]
  - PALPITATIONS [None]
  - RASH [None]
  - VERTIGO [None]
